FAERS Safety Report 8356543 (Version 3)
Quarter: 2013Q1

REPORT INFORMATION
  Report Type: Report from Study
  Country: CZ (occurrence: CZ)
  Receive Date: 20120126
  Receipt Date: 20130222
  Transmission Date: 20140127
  Serious: Yes (Hospitalization, Other)
  Sender: FDA-Public Use
  Company Number: CZ-ABBOTT-12P-217-0892344-00

PATIENT
  Age: 67 None
  Sex: Female
  Weight: 70 kg

DRUGS (18)
  1. HUMIRA 40 MG/ 0.8 ML PRE-FILLED SYRINGE [Suspect]
     Indication: RHEUMATOID ARTHRITIS
     Route: 058
     Dates: start: 2009
  2. HUMIRA 40 MG/ 0.8 ML PRE-FILLED SYRINGE [Suspect]
     Dates: start: 20111231
  3. IMUNOR [Suspect]
     Indication: PRODUCT USED FOR UNKNOWN INDICATION
  4. PREDNISON [Concomitant]
     Indication: PRODUCT USED FOR UNKNOWN INDICATION
     Dates: start: 20090617
  5. EUTHYROX [Concomitant]
     Indication: PRODUCT USED FOR UNKNOWN INDICATION
     Dates: start: 20090617
  6. BETALOC [Concomitant]
     Indication: PRODUCT USED FOR UNKNOWN INDICATION
     Dates: start: 20090617
  7. METHOTREXATE [Concomitant]
     Indication: PRODUCT USED FOR UNKNOWN INDICATION
     Dates: start: 20090617
  8. FOLIC ACID [Concomitant]
     Indication: PRODUCT USED FOR UNKNOWN INDICATION
     Dates: start: 20090617
  9. LUSOPRESS [Concomitant]
     Indication: PRODUCT USED FOR UNKNOWN INDICATION
  10. PRESTARIUM NEO COMBI [Concomitant]
     Indication: PRODUCT USED FOR UNKNOWN INDICATION
  11. APO-FENO [Concomitant]
     Indication: DYSLIPIDAEMIA
  12. SYNTOSTIGMIN [Concomitant]
     Indication: PRODUCT USED FOR UNKNOWN INDICATION
  13. RECOXA [Concomitant]
     Indication: PRODUCT USED FOR UNKNOWN INDICATION
  14. ISOCHOL [Concomitant]
     Indication: PRODUCT USED FOR UNKNOWN INDICATION
  15. PARALEN [Concomitant]
     Indication: BODY TEMPERATURE INCREASED
  16. PARALEN [Concomitant]
     Indication: PAIN
  17. VITAMIN D [Concomitant]
     Indication: PRODUCT USED FOR UNKNOWN INDICATION
  18. NITROFURANTOIN [Concomitant]
     Indication: URINARY TRACT INFECTION

REACTIONS (23)
  - Bronchitis [Recovered/Resolved]
  - Presyncope [Unknown]
  - Amaurosis [Unknown]
  - Dizziness [Unknown]
  - Rales [Unknown]
  - Pyrexia [Unknown]
  - Chills [Unknown]
  - Myalgia [Unknown]
  - Headache [Unknown]
  - Cough [Unknown]
  - Arthralgia [Unknown]
  - Throat irritation [Unknown]
  - Laryngeal pain [Unknown]
  - Chest pain [Unknown]
  - Cough [Unknown]
  - Dysuria [Unknown]
  - Obesity [Unknown]
  - Fatigue [Unknown]
  - Dehydration [Unknown]
  - Tongue dry [Unknown]
  - Tongue discolouration [Unknown]
  - Varicose vein [Unknown]
  - Urinary tract infection [Recovered/Resolved]
